FAERS Safety Report 14425622 (Version 4)
Quarter: 2018Q2

REPORT INFORMATION
  Report Type: Spontaneous
  Country: BR (occurrence: BR)
  Receive Date: 20180123
  Receipt Date: 20180511
  Transmission Date: 20180711
  Serious: Yes (Life-Threatening, Hospitalization, Other)
  Sender: FDA-Public Use
  Company Number: BR-ABBVIE-18P-020-2226201-00

PATIENT
  Sex: Male
  Weight: 18 kg

DRUGS (5)
  1. KEPPRA [Concomitant]
     Active Substance: LEVETIRACETAM
     Indication: SEIZURE
     Dosage: INITIAL DOSE NOT INFORMED
  2. DEPAKOTE [Suspect]
     Active Substance: DIVALPROEX SODIUM
     Indication: SEIZURE
     Dosage: IN THE MORNING AND AT NIGHT
     Route: 065
     Dates: end: 2018
  3. KEPPRA [Concomitant]
     Active Substance: LEVETIRACETAM
     Dosage: IN THE MORNING AND AT NIGHT
  4. VODSSO [Concomitant]
     Active Substance: VALPROIC ACID
     Indication: SEIZURE
     Dosage: INITIAL DOSE NOT INFORMED
     Dates: start: 2018
  5. VODSSO [Concomitant]
     Active Substance: VALPROIC ACID
     Dosage: THIS WAS THE FINAL DOSE / END DATE: UNSPECIFED DATE, 40 DAYS AGO AT THE MAXIMUM
     Dates: end: 2018

REACTIONS (17)
  - Muscle rigidity [Recovered/Resolved]
  - Seizure [Not Recovered/Not Resolved]
  - Vomiting [Recovered/Resolved]
  - Skin discolouration [Recovered/Resolved]
  - Pneumonia [Recovered/Resolved]
  - Drug administered to patient of inappropriate age [Unknown]
  - Balance disorder [Not Recovered/Not Resolved]
  - Drooling [Not Recovered/Not Resolved]
  - Food refusal [Recovered/Resolved]
  - Somnolence [Recovered/Resolved]
  - Eye movement disorder [Recovered/Resolved]
  - Muscle spasms [Recovered/Resolved]
  - Sleep disorder [Recovered/Resolved]
  - Product quality issue [Unknown]
  - Aspiration [Recovered/Resolved]
  - Petit mal epilepsy [Recovered/Resolved]
  - Unresponsive to stimuli [Not Recovered/Not Resolved]

NARRATIVE: CASE EVENT DATE: 2017
